FAERS Safety Report 9100626 (Version 1)
Quarter: 2013Q1

REPORT INFORMATION
  Report Type: Spontaneous
  Country: US (occurrence: US)
  Receive Date: 20130215
  Receipt Date: 20130215
  Transmission Date: 20140127
  Serious: Yes (Hospitalization)
  Sender: FDA-Public Use
  Company Number: US-JNJFOC-20130203831

PATIENT
  Age: 28 Year
  Sex: Female

DRUGS (2)
  1. XARELTO [Suspect]
     Indication: PULMONARY EMBOLISM
     Route: 048
  2. LOVENOX [Suspect]
     Indication: PULMONARY EMBOLISM
     Route: 065

REACTIONS (1)
  - Ischaemic stroke [Unknown]
